FAERS Safety Report 6651259-1 (Version None)
Quarter: 2010Q1

REPORT INFORMATION
  Report Type: 
  Country: None (occurrence: None)
  Receive Date: 20100322
  Receipt Date: 20100309
  Transmission Date: 20100710
  Serious: Yes (Other)
  Sender: FDA-Public Use
  Company Number: 004907

PATIENT
  Sex: Male
  Weight: 77 kg

DRUGS (6)
  1. NEUPRO [Suspect]
     Indication: PARKINSON'S DISEASE
     Dosage: (2 MG QD TRANSDERMAL), (4 MG QD TRANSDERMAL), (6 MG QD TRANSDERMAL), (8 MG QD TRANSDERMAL)
     Route: 062
     Dates: start: 20090121, end: 20090401
  2. NEUPRO [Suspect]
     Indication: PARKINSON'S DISEASE
     Dosage: (2 MG QD TRANSDERMAL), (4 MG QD TRANSDERMAL), (6 MG QD TRANSDERMAL), (8 MG QD TRANSDERMAL)
     Route: 062
     Dates: start: 20090402, end: 20091007
  3. NEUPRO [Suspect]
     Indication: PARKINSON'S DISEASE
     Dosage: (2 MG QD TRANSDERMAL), (4 MG QD TRANSDERMAL), (6 MG QD TRANSDERMAL), (8 MG QD TRANSDERMAL)
     Route: 062
     Dates: start: 20091008, end: 20091028
  4. NEUPRO [Suspect]
     Indication: PARKINSON'S DISEASE
     Dosage: (2 MG QD TRANSDERMAL), (4 MG QD TRANSDERMAL), (6 MG QD TRANSDERMAL), (8 MG QD TRANSDERMAL)
     Route: 062
     Dates: start: 20091029
  5. LEVODOPA COMP B [Concomitant]
  6. SOTALOL HCL [Concomitant]

REACTIONS (2)
  - AORTIC VALVE SCLEROSIS [None]
  - AORTIC VALVE STENOSIS [None]
